FAERS Safety Report 18765437 (Version 2)
Quarter: 2021Q3

REPORT INFORMATION
  Report Type: Spontaneous
  Country: US (occurrence: US)
  Receive Date: 20210121
  Receipt Date: 20210721
  Transmission Date: 20211014
  Serious: No
  Sender: FDA-Public Use
  Company Number: US-SA-2021SA015584

PATIENT
  Age: 47 Year
  Sex: Male

DRUGS (4)
  1. LOSARTAN. [Concomitant]
     Active Substance: LOSARTAN
     Dosage: 10 MG
  2. TAMOXIFEN [Concomitant]
     Active Substance: TAMOXIFEN
     Dosage: 52 MG
  3. DUPIXENT [Suspect]
     Active Substance: DUPILUMAB
     Indication: DERMATITIS ATOPIC
     Dosage: 300 MG, QOW
     Route: 058
     Dates: start: 20190213
  4. MONTELUKAST [Concomitant]
     Active Substance: MONTELUKAST SODIUM
     Dosage: UNK MG

REACTIONS (4)
  - Sleep disorder [Unknown]
  - Dermatitis atopic [Unknown]
  - Discomfort [Unknown]
  - Rash [Unknown]
